FAERS Safety Report 4929345-3 (Version None)
Quarter: 2006Q1

REPORT INFORMATION
  Report Type: 
  Country: None (occurrence: None)
  Receive Date: 20060224
  Receipt Date: 20060208
  Transmission Date: 20060701
  Serious: Yes (Other)
  Sender: FDA-Public Use
  Company Number: 2006025561

PATIENT
  Age: 34 Year
  Sex: Female

DRUGS (1)
  1. CABERGOLINE [Suspect]
     Indication: ILL-DEFINED DISORDER
     Dosage: ORAL
     Route: 048

REACTIONS (10)
  - BLOOD FOLLICLE STIMULATING HORMONE INCREASED [None]
  - BLOOD LUTEINISING HORMONE DECREASED [None]
  - DRUG ERUPTION [None]
  - HYPERPROLACTINAEMIA [None]
  - LACTATION DISORDER [None]
  - MENSTRUATION IRREGULAR [None]
  - NAUSEA [None]
  - OESTRADIOL INCREASED [None]
  - OVARIAN CYST [None]
  - PITUITARY TUMOUR BENIGN [None]
